FAERS Safety Report 14827508 (Version 1)
Quarter: 2018Q2

REPORT INFORMATION
  Report Type: Spontaneous
  Country: US (occurrence: US)
  Receive Date: 20180405
  Receipt Date: 20180405
  Transmission Date: 20180711
  Serious: Yes (Disabling)
  Sender: FDA-Public Use
  Company Number: None

PATIENT
  Age: 67 Year
  Sex: Female
  Weight: 72 kg

DRUGS (6)
  1. KRILL OIL [Concomitant]
     Active Substance: DIETARY SUPPLEMENT
  2. MOXIFLOXACIN EYE DROPS ,O5 [Suspect]
     Active Substance: MOXIFLOXACIN HYDROCHLORIDE
     Indication: CATARACT
     Dosage: ?          QUANTITY:2 DROP(S);?
     Route: 047
     Dates: start: 20170401, end: 20170507
  3. MAGNESIUM GLYCINATE [Concomitant]
     Active Substance: MAGNESIUM GLYCINATE
  4. METHYLATED BCOMPLEX [Concomitant]
  5. VITAMIN D3 CHOLECALCIFEROL [Concomitant]
  6. VIT C ACEROLA [Concomitant]

REACTIONS (14)
  - Hyperhidrosis [None]
  - Nightmare [None]
  - Hot flush [None]
  - Insomnia [None]
  - Irritability [None]
  - Hair growth abnormal [None]
  - Confusional state [None]
  - Onychomadesis [None]
  - Alopecia [None]
  - Skin exfoliation [None]
  - Peripheral coldness [None]
  - Tendonitis [None]
  - Back pain [None]
  - Bursitis [None]

NARRATIVE: CASE EVENT DATE: 20170416
